FAERS Safety Report 7681864-5 (Version None)
Quarter: 2011Q3

REPORT INFORMATION
  Report Type: 
  Country: None (occurrence: None)
  Receive Date: 20110813
  Receipt Date: 20110801
  Transmission Date: 20111222
  Serious: Yes (Other)
  Sender: FDA-Public Use
  Company Number: US-ELI_LILLY_AND_COMPANY-US201108001745

PATIENT
  Sex: Female

DRUGS (21)
  1. COPPER [Concomitant]
     Indication: MINERAL SUPPLEMENTATION
  2. LUTEIN [Concomitant]
     Indication: MEDICAL DIET
  3. FORTEO [Suspect]
     Dosage: 20 UG, QD
     Dates: start: 20110609
  4. VITAMIN E                            /001105/ [Concomitant]
     Indication: VITAMIN SUPPLEMENTATION
  5. ZINC [Concomitant]
     Indication: MINERAL SUPPLEMENTATION
  6. FORTEO [Suspect]
     Indication: OSTEOPOROSIS
     Dosage: 20 UG, QD
     Dates: start: 20081211, end: 20101207
  7. LISINOPRIL [Concomitant]
     Dosage: 1 DF, BID
  8. CALCIUM W/VITAMIN D NOS [Concomitant]
     Dosage: 600/400
  9. CITALOPRAM HYDROBROMIDE [Concomitant]
     Dosage: 20 MG, QD
  10. FOLIC ACID [Concomitant]
     Dosage: 1 MG, QD
  11. SELENIUM [Concomitant]
     Indication: MINERAL SUPPLEMENTATION
  12. ACETAMINOPHEN [Concomitant]
     Dosage: 2 DF, BID
  13. VITAMIN B-12 [Concomitant]
  14. CRESTOR [Concomitant]
     Dosage: 10 MG, QD
  15. CALCIUM CARBONATE [Concomitant]
  16. VITAMIN B [Concomitant]
     Dosage: 650 MG, QD
  17. NIFEDIPINE [Concomitant]
     Indication: BLOOD PRESSURE ABNORMAL
     Dosage: 10 MG, BID
  18. ASCORBIC ACID [Concomitant]
     Indication: VITAMIN SUPPLEMENTATION
  19. GLUCOSAMINE CHONDROITIN [Concomitant]
     Dosage: 2 DF, QD
  20. VOLTAREN [Concomitant]
     Indication: ARTHRALGIA
  21. VITAMIN A [Concomitant]
     Indication: VITAMIN SUPPLEMENTATION

REACTIONS (4)
  - FALL [None]
  - PAIN [None]
  - PELVIC FRACTURE [None]
  - DRUG PRESCRIBING ERROR [None]
